FAERS Safety Report 7581015-1 (Version None)
Quarter: 2011Q2

REPORT INFORMATION
  Report Type: 
  Country: None (occurrence: None)
  Receive Date: 20110629
  Receipt Date: 20110621
  Transmission Date: 20111010
  Serious: Yes (Hospitalization, Other)
  Sender: FDA-Public Use
  Company Number: US-CELGENEUS-163-21880-11061281

PATIENT
  Sex: Female

DRUGS (9)
  1. PROTONIX [Concomitant]
     Route: 065
  2. PROCHLORPERAZINE MALEATE [Concomitant]
     Route: 065
  3. CARVEDILOL [Concomitant]
     Route: 065
  4. DEXAMETHASONE [Concomitant]
     Route: 065
  5. GABAPENTIN [Concomitant]
     Route: 065
  6. REVLIMID [Suspect]
     Dosage: 5 MILLIGRAM
     Route: 048
     Dates: start: 20110223
  7. RENAGEL [Concomitant]
     Route: 065
  8. SYNTHROID [Concomitant]
     Route: 065
  9. DIAVAN [Concomitant]
     Route: 065

REACTIONS (1)
  - ANKLE FRACTURE [None]
